FAERS Safety Report 8290024 (Version 2)
Quarter: 2018Q4

REPORT INFORMATION
  Report Type: Spontaneous
  Country: SE (occurrence: SE)
  Receive Date: 20111214
  Receipt Date: 20181109
  Transmission Date: 20190205
  Serious: Yes (Hospitalization)
  Sender: FDA-Public Use
  Company Number: SE-PFIZER INC-2011299509

PATIENT
  Age: 20 Year
  Sex: Male

DRUGS (2)
  1. DOSTINEX [Suspect]
     Active Substance: CABERGOLINE
     Indication: MALIGNANT PITUITARY TUMOUR
     Dosage: UNK
     Dates: start: 201108, end: 20111026
  2. DOSTINEX [Suspect]
     Active Substance: CABERGOLINE
     Indication: CRANIOPHARYNGIOMA

REACTIONS (1)
  - Pleurisy [Recovering/Resolving]

NARRATIVE: CASE EVENT DATE: 20111026
